FAERS Safety Report 12828897 (Version 1)
Quarter: 2016Q4

REPORT INFORMATION
  Report Type: Spontaneous
  Country: US (occurrence: US)
  Receive Date: 20161007
  Receipt Date: 20161007
  Transmission Date: 20170207
  Serious: No
  Sender: FDA-Public Use
  Company Number: US-SA-2015SA174590

PATIENT
  Age: 57 Year
  Sex: Female

DRUGS (8)
  1. AUBAGIO [Suspect]
     Active Substance: TERIFLUNOMIDE
     Indication: MULTIPLE SCLEROSIS
     Route: 048
     Dates: start: 20150722
  2. HYDROCHLOROTHIAZIDE/LISINOPRIL [Concomitant]
     Dosage: 20-25 MG
  3. MELATONIN [Concomitant]
     Active Substance: MELATONIN
  4. VITAMIN D [Concomitant]
     Active Substance: CHOLECALCIFEROL
     Dosage: DOSE:50000 UNIT(S)
  5. ALPRAZOLAM. [Concomitant]
     Active Substance: ALPRAZOLAM
  6. SIMVASTATIN. [Concomitant]
     Active Substance: SIMVASTATIN
  7. IBUPROFEN. [Concomitant]
     Active Substance: IBUPROFEN
  8. BUPROPION. [Concomitant]
     Active Substance: BUPROPION

REACTIONS (9)
  - Burning sensation [Not Recovered/Not Resolved]
  - Muscle spasticity [Not Recovered/Not Resolved]
  - Arthralgia [Unknown]
  - Alopecia [Not Recovered/Not Resolved]
  - Depression [Not Recovered/Not Resolved]
  - Anxiety [Not Recovered/Not Resolved]
  - Pruritus [Not Recovered/Not Resolved]
  - Drug ineffective [Unknown]
  - Paraesthesia [Not Recovered/Not Resolved]

NARRATIVE: CASE EVENT DATE: 201507
